FAERS Safety Report 13651096 (Version 1)
Quarter: 2017Q2

REPORT INFORMATION
  Report Type: Spontaneous
  Country: US (occurrence: US)
  Receive Date: 20170614
  Receipt Date: 20170614
  Transmission Date: 20170830
  Serious: Yes (Other)
  Sender: FDA-Public Use
  Company Number: US-PFIZER INC-2017253638

PATIENT
  Age: 90 Year
  Sex: Female
  Weight: 42 kg

DRUGS (1)
  1. IBRANCE [Suspect]
     Active Substance: PALBOCICLIB
     Indication: NEOPLASM MALIGNANT
     Dosage: 75 MG, 1X/DAY, FOR 21 DAYS, AND THEN OFF FOR 7 DAYS
     Route: 048
     Dates: start: 2017, end: 2017

REACTIONS (4)
  - Diarrhoea [Unknown]
  - Weight decreased [Unknown]
  - Glaucoma [Unknown]
  - Dysgeusia [Unknown]
